FAERS Safety Report 7073351-2 (Version None)
Quarter: 2010Q4

REPORT INFORMATION
  Report Type: 
  Country: None (occurrence: None)
  Receive Date: 20101029
  Receipt Date: 20100607
  Transmission Date: 20110411
  Serious: No
  Sender: FDA-Public Use
  Company Number: A0863344A

PATIENT
  Sex: Male

DRUGS (5)
  1. ADVAIR DISKUS 100/50 [Suspect]
     Indication: RESPIRATORY DISORDER
     Route: 055
     Dates: start: 20100301, end: 20100502
  2. SOTALOL [Concomitant]
  3. METOPROLOL [Concomitant]
  4. ASPIRIN [Concomitant]
  5. LISINOPRIL [Concomitant]

REACTIONS (2)
  - APHONIA [None]
  - DYSPHONIA [None]
